FAERS Safety Report 4354076-0 (Version None)
Quarter: 2004Q2

REPORT INFORMATION
  Report Type: 
  Country: None (occurrence: None)
  Receive Date: 20040503
  Receipt Date: 20040421
  Transmission Date: 20050107
  Serious: Yes (Hospitalization)
  Sender: FDA-Public Use
  Company Number: 365067

PATIENT
  Age: 75 Year
  Sex: Female

DRUGS (2)
  1. NEOTIGASON (ACITRETIN) 25 MG [Suspect]
     Indication: PSORIASIS
     Dosage: ORAL
     Route: 048
     Dates: start: 20030615, end: 20031218
  2. CLARITHROMYCIN [Suspect]
     Indication: BREAST DISORDER
     Dosage: ORAL
     Route: 048
     Dates: start: 20031215, end: 20031218

REACTIONS (10)
  - ACUTE GENERALISED EXANTHEMATOUS PUSTULOSIS [None]
  - AGRANULOCYTOSIS [None]
  - CAPILLARY LEAK SYNDROME [None]
  - FEELING HOT [None]
  - HEPATIC FAILURE [None]
  - HYPOTENSION [None]
  - LEUKOCYTOSIS [None]
  - OEDEMA PERIPHERAL [None]
  - PULMONARY OEDEMA [None]
  - RENAL FAILURE [None]
